FAERS Safety Report 16862594 (Version 1)
Quarter: 2019Q3

REPORT INFORMATION
  Report Type: Spontaneous
  Country: US (occurrence: US)
  Receive Date: 20190927
  Receipt Date: 20190927
  Transmission Date: 20191005
  Serious: Yes (Other)
  Sender: FDA-Public Use
  Company Number: US-PFIZER INC-2016408381

PATIENT
  Age: 84 Year
  Sex: Female

DRUGS (24)
  1. SYNTHROID [Concomitant]
     Active Substance: LEVOTHYROXINE SODIUM
     Dosage: 112 UG, 1X/DAY, (BEFORE BREAKFAST)
     Route: 048
  2. LYRICA [Suspect]
     Active Substance: PREGABALIN
     Dosage: 100 MG, 3X/DAY
     Route: 048
     Dates: start: 20170403
  3. ZOFRAN [Concomitant]
     Active Substance: ONDANSETRON HYDROCHLORIDE
     Dosage: 0.5 MG, AS NEEDED, (TAKE 0.5 TABS BY MOUTH TWO TIMES A DAY AS NEEDED)
  4. TYLENOL [Concomitant]
     Active Substance: ACETAMINOPHEN
     Indication: BODY TEMPERATURE INCREASED
  5. PROCARDIA [Concomitant]
     Active Substance: NIFEDIPINE
     Dosage: 30 MG, DAILY, (TAKE 30 MG BY MOUTH DAILY)
     Route: 048
  6. LYRICA [Suspect]
     Active Substance: PREGABALIN
     Dosage: UNK
  7. LYRICA [Suspect]
     Active Substance: PREGABALIN
     Dosage: 100 MG, 3X/DAY
     Route: 048
     Dates: start: 20171120
  8. COLACE [Concomitant]
     Active Substance: DOCUSATE SODIUM
     Dosage: 100 MG, 2X/DAY
     Route: 048
  9. ADALAT CC [Concomitant]
     Active Substance: NIFEDIPINE
     Dosage: 30 MG, DAILY
     Route: 048
  10. MYCOSTATIN [Concomitant]
     Active Substance: NYSTATIN
     Dosage: UNK, AS NEEDED (AS NEEDED, (100,000 UNIT/GRAM APPLY TWO TIMES A DAY)
     Route: 061
  11. PRILOSEC [Concomitant]
     Active Substance: OMEPRAZOLE MAGNESIUM
     Dosage: 20 MG, DAILY
     Route: 048
  12. B-COMPLEX [VITAMIN B COMPLEX] [Concomitant]
     Dosage: UNK, DAILY  (TAKE 1 TAB BY MOUTH DAILY)
     Route: 048
  13. ASACOL HD [Concomitant]
     Active Substance: MESALAMINE
     Dosage: 800 MG, 2X/DAY
     Route: 048
  14. GLUCOPHAGE [Concomitant]
     Active Substance: METFORMIN HYDROCHLORIDE
     Dosage: 500 MG, 2X/DAY(BEFORE MEALS)
     Route: 048
  15. CULTURELLE HEALTH + WELLNESS PROBIOTIC [Concomitant]
     Dosage: UNK, (LACTOBACILLUS RHAMNOSUS GG 15 BILLION CELL CAPSULE BY MOUTH)
     Route: 048
  16. LYRICA [Suspect]
     Active Substance: PREGABALIN
     Dosage: 100 MG, 3X/DAY
     Route: 048
     Dates: start: 20160823
  17. LIDODERM [Concomitant]
     Active Substance: LIDOCAINE
     Dosage: UNK (APPLY 1 PATCH DAILY. APPLY FOR 12HR; THEN REMOVE FOR 12HR)
     Route: 061
  18. COZAAR [Concomitant]
     Active Substance: LOSARTAN POTASSIUM
     Dosage: 100 MG, DAILY
     Route: 048
  19. LEVOTHROID [Concomitant]
     Active Substance: LEVOTHYROXINE SODIUM
     Dosage: 112 UG, 1X/DAY, (BEFORE BREAKFAST)
     Route: 048
  20. ULTRAM [Concomitant]
     Active Substance: TRAMADOL HYDROCHLORIDE
     Dosage: 50 MG, AS NEEDED, (1 TAB BY MOUTH EVERY 6 HOURS AS NEEDED)
     Route: 048
  21. DEMADEX [Concomitant]
     Active Substance: TORSEMIDE
     Dosage: 40 MG, DAILY, (TAKE 2 TABS BY MOUTH DAILY)
     Route: 048
  22. TYLENOL [Concomitant]
     Active Substance: ACETAMINOPHEN
     Indication: PAIN
     Dosage: 325 MG, AS NEEDED, (TAKE 2 TABS BY MOUTH EVERY 4 HOURS AS NEEDED)
     Route: 048
  23. MIRALAX [Concomitant]
     Active Substance: POLYETHYLENE GLYCOL 3350
     Dosage: 1 DF, DAILY, (TAKE 1 CAP BY MOUTH DAILY)
     Route: 048
  24. NIACIN. [Concomitant]
     Active Substance: NIACIN
     Dosage: 500 MG, 2X/DAY(1 TWICE DAILY)

REACTIONS (2)
  - Loss of personal independence in daily activities [Unknown]
  - Dementia [Unknown]
